FAERS Safety Report 5323627-1 (Version None)
Quarter: 2007Q2

REPORT INFORMATION
  Report Type: 
  Country: None (occurrence: None)
  Receive Date: 20070510
  Receipt Date: 20070510
  Transmission Date: 20071010
  Serious: No
  Sender: FDA-Public Use
  Company Number: None

PATIENT
  Age: 52 Year
  Sex: Male
  Weight: 113.3993 kg

DRUGS (2)
  1. WHITENING PRE-BRUSH RINSE , LISTERINE, PFIZER/J+J CONSUMER PROD'S [Suspect]
     Indication: DENTAL TREATMENT
     Dosage: MOUTHFULL 2X DAILY BEFORE BRUSHING ORAL
     Route: 048
     Dates: start: 20060901, end: 20060914
  2. NYSTATIN [Concomitant]

REACTIONS (11)
  - AGEUSIA [None]
  - ANOSMIA [None]
  - GINGIVAL BLEEDING [None]
  - GINGIVITIS [None]
  - INFLAMMATION [None]
  - LETHARGY [None]
  - MALAISE [None]
  - MUCOSAL EXFOLIATION [None]
  - NODULE [None]
  - TONGUE DISCOLOURATION [None]
  - TONGUE DISORDER [None]
